FAERS Safety Report 6334573-9 (Version None)
Quarter: 2009Q3

REPORT INFORMATION
  Report Type: 
  Country: None (occurrence: None)
  Receive Date: 20090831
  Receipt Date: 20090821
  Transmission Date: 20100115
  Serious: Yes (Other)
  Sender: FDA-Public Use
  Company Number: PHHY2009JP13628

PATIENT
  Age: 63 Year
  Sex: Male

DRUGS (3)
  1. NEORAL [Suspect]
     Indication: MYASTHENIA GRAVIS
     Dosage: 250 MG DAILY
     Dates: start: 19970101
  2. PREDONINE [Suspect]
     Indication: MYASTHENIA GRAVIS
     Dosage: 35 MG DAILY (EVERY OTHER DAY)
     Dates: end: 20050701
  3. PREDONINE [Suspect]
     Dosage: 45 MG DAILY
     Dates: start: 20050701

REACTIONS (3)
  - CYTOMEGALOVIRUS INFECTION [None]
  - GASTRIC ULCER [None]
  - HERPES ZOSTER [None]
